FAERS Safety Report 10196351 (Version 2)
Quarter: 2014Q2

REPORT INFORMATION
  Report Type: Spontaneous
  Country: US (occurrence: US)
  Receive Date: 20140527
  Receipt Date: 20140604
  Transmission Date: 20141212
  Serious: Yes (Other)
  Sender: FDA-Public Use
  Company Number: US-JNJFOC-20140514109

PATIENT
  Sex: Male

DRUGS (1)
  1. RISPERDAL [Suspect]
     Indication: PRODUCT USED FOR UNKNOWN INDICATION
     Route: 048
     Dates: start: 1996, end: 2013

REACTIONS (20)
  - Diabetes mellitus [Unknown]
  - Suicidal ideation [Unknown]
  - Delayed puberty [Unknown]
  - Endocrine disorder [Unknown]
  - Weight increased [Unknown]
  - Gynaecomastia [Unknown]
  - Hyperprolactinaemia [Unknown]
  - Agitation [Unknown]
  - Motor dysfunction [Unknown]
  - Dyssomnia [Unknown]
  - Anxiety [Unknown]
  - Disturbance in attention [Unknown]
  - Sexual dysfunction [Unknown]
  - Mental impairment [Unknown]
  - Gastrointestinal disorder [Unknown]
  - Urinary incontinence [Unknown]
  - Faecal incontinence [Unknown]
  - Fear [Unknown]
  - Off label use [Unknown]
  - Emotional distress [Unknown]
